FAERS Safety Report 6007480-9 (Version None)
Quarter: 2008Q4

REPORT INFORMATION
  Report Type: 
  Country: None (occurrence: None)
  Receive Date: 20081217
  Receipt Date: 20080428
  Transmission Date: 20090506
  Serious: No
  Sender: FDA-Public Use
  Company Number: US-ASTRAZENECA-2008UW08534

PATIENT
  Age: 71 Year
  Sex: Male
  Weight: 78.5 kg

DRUGS (9)
  1. CRESTOR [Suspect]
     Route: 048
  2. CARBIDOPA [Concomitant]
  3. LEVODOPA [Concomitant]
  4. MIRAPEX [Concomitant]
  5. TOPROL-XL [Concomitant]
  6. ENALAPRIL MALEATE [Concomitant]
  7. ASPIRIN [Concomitant]
  8. DURAGESIC-100 [Concomitant]
  9. VITAMINS [Concomitant]

REACTIONS (2)
  - HYPOAESTHESIA [None]
  - MUSCLE SPASMS [None]
